FAERS Safety Report 13571828 (Version 2)
Quarter: 2018Q1

REPORT INFORMATION
  Report Type: Spontaneous
  Country: US (occurrence: US)
  Receive Date: 20170523
  Receipt Date: 20180302
  Transmission Date: 20180508
  Serious: No
  Sender: FDA-Public Use
  Company Number: US-TEVA-763770ACC

PATIENT
  Sex: Female

DRUGS (19)
  1. VITAMIN B12 [Concomitant]
     Active Substance: CYANOCOBALAMIN
  2. ZOMIG [Concomitant]
     Active Substance: ZOLMITRIPTAN
  3. SUCRALFATE. [Concomitant]
     Active Substance: SUCRALFATE
  4. ALBUTEROL. [Concomitant]
     Active Substance: ALBUTEROL
  5. ALBUTEROL. [Concomitant]
     Active Substance: ALBUTEROL
  6. YASMIN [Concomitant]
     Active Substance: DROSPIRENONE\ETHINYL ESTRADIOL
  7. ZANTAC [Concomitant]
     Active Substance: RANITIDINE HYDROCHLORIDE
  8. PRILOSEC [Concomitant]
     Active Substance: OMEPRAZOLE MAGNESIUM
  9. IBUPROFEN. [Concomitant]
     Active Substance: IBUPROFEN
  10. TYLENOL [Concomitant]
     Active Substance: ACETAMINOPHEN
  11. COPAXONE [Suspect]
     Active Substance: GLATIRAMER ACETATE
     Indication: MULTIPLE SCLEROSIS
     Dosage: 20 MILLIGRAM/MILLILITERS DAILY;
     Route: 058
     Dates: start: 20090313
  12. PROTONIX [Concomitant]
     Active Substance: PANTOPRAZOLE SODIUM
  13. AVONEX [Concomitant]
     Active Substance: INTERFERON BETA-1A
  14. PROTONIX [Concomitant]
     Active Substance: PANTOPRAZOLE SODIUM
  15. FOLIC ACID. [Concomitant]
     Active Substance: FOLIC ACID
  16. VITAMIN D [Concomitant]
     Active Substance: CHOLECALCIFEROL
     Dosage: 1000UNIT
  17. MULTIVITAMIN [Concomitant]
     Active Substance: VITAMINS
  18. ZOLOFT [Concomitant]
     Active Substance: SERTRALINE HYDROCHLORIDE
  19. TRIAMCINOLONE [Concomitant]
     Active Substance: TRIAMCINOLONE

REACTIONS (2)
  - Maternal exposure during delivery [Unknown]
  - Injection site reaction [Unknown]
